FAERS Safety Report 5127403-4 (Version None)
Quarter: 2006Q4

REPORT INFORMATION
  Report Type: 
  Country: None (occurrence: None)
  Receive Date: 20061013
  Receipt Date: 20061013
  Transmission Date: 20070319
  Serious: Yes (Other)
  Sender: FDA-Public Use
  Company Number: None

PATIENT
  Age: 59 Year
  Sex: Female

DRUGS (1)
  1. CLINDAMYCIN [Suspect]
     Dosage: ORAL 150.0 MILLIGRAM
     Route: 048
     Dates: start: 20060721

REACTIONS (3)
  - RASH ERYTHEMATOUS [None]
  - RASH GENERALISED [None]
  - RASH PRURITIC [None]
